FAERS Safety Report 7763864-X (Version None)
Quarter: 2011Q3

REPORT INFORMATION
  Report Type: 
  Country: None (occurrence: None)
  Receive Date: 20110921
  Receipt Date: 20100924
  Transmission Date: 20111222
  Serious: No
  Sender: FDA-Public Use
  Company Number: US-BAYER-201037427NA

PATIENT
  Sex: Female

DRUGS (1)
  1. MIRENA [Suspect]
     Dosage: 20 MCG/24HR, CONT
     Route: 015

REACTIONS (6)
  - AMENORRHOEA [None]
  - MENSTRUATION IRREGULAR [None]
  - PREMENSTRUAL SYNDROME [None]
  - BACK PAIN [None]
  - FATIGUE [None]
  - ABDOMINAL PAIN LOWER [None]
